FAERS Safety Report 20628152 (Version 2)
Quarter: 2022Q2

REPORT INFORMATION
  Report Type: Spontaneous
  Country: CN (occurrence: CN)
  Receive Date: 20220323
  Receipt Date: 20220630
  Transmission Date: 20220720
  Serious: Yes (Hospitalization)
  Sender: FDA-Public Use
  Company Number: CN-Eisai Medical Research-EC-2022-111172

PATIENT
  Age: 53 Year
  Sex: Female
  Weight: 59 kg

DRUGS (6)
  1. HALAVEN [Suspect]
     Active Substance: ERIBULIN MESYLATE
     Indication: Breast cancer metastatic
     Route: 041
     Dates: start: 20220217, end: 20220217
  2. HALAVEN [Suspect]
     Active Substance: ERIBULIN MESYLATE
     Route: 041
     Dates: start: 20220225
  3. TRASTUZUMAB [Suspect]
     Active Substance: TRASTUZUMAB
     Indication: Breast cancer metastatic
     Dosage: FREQUENCY UNKNOWN
     Route: 041
     Dates: start: 20220216, end: 20220216
  4. TRASTUZUMAB [Suspect]
     Active Substance: TRASTUZUMAB
     Dosage: FREQUENCY UNKNOWN
     Route: 041
     Dates: start: 20220507, end: 20220507
  5. PYROTINIB MALEATE [Suspect]
     Active Substance: PYROTINIB MALEATE
     Indication: Breast cancer metastatic
     Route: 048
     Dates: start: 20220216, end: 20220222
  6. PYROTINIB MALEATE [Suspect]
     Active Substance: PYROTINIB MALEATE
     Dosage: FREQUENCY UNKNOWN
     Route: 048
     Dates: start: 20220507, end: 20220507

REACTIONS (1)
  - Myelosuppression [Recovering/Resolving]

NARRATIVE: CASE EVENT DATE: 20220222
